FAERS Safety Report 8273149-3 (Version None)
Quarter: 2012Q2

REPORT INFORMATION
  Report Type: 
  Country: None (occurrence: None)
  Receive Date: 20120411
  Receipt Date: 20120405
  Transmission Date: 20120825
  Serious: Yes (Life-Threatening)
  Sender: FDA-Public Use
  Company Number: EG-SANOFI-AVENTIS-2012SA024166

PATIENT
  Age: 10 Year
  Sex: Male

DRUGS (2)
  1. LANTUS [Suspect]
     Indication: DIABETES MELLITUS
     Dosage: DOSE:10 UNIT(S)
     Route: 058
     Dates: start: 20120130
  2. LANTUS [Suspect]
     Dosage: DOSE:4 UNIT(S)
     Route: 058
     Dates: end: 20120205

REACTIONS (2)
  - HYPOGLYCAEMIA [None]
  - COMA [None]
